FAERS Safety Report 4575321-2 (Version None)
Quarter: 2005Q1

REPORT INFORMATION
  Report Type: 
  Country: None (occurrence: None)
  Receive Date: 20050209
  Receipt Date: 20041221
  Transmission Date: 20050727
  Serious: Yes (Death, Life-Threatening, Other)
  Sender: FDA-Public Use
  Company Number: GB-JNJFOC-20041104351

PATIENT
  Sex: Male
  Weight: 70 kg

DRUGS (3)
  1. REMICADE [Suspect]
     Indication: RHEUMATOID ARTHRITIS
     Route: 042
  2. ROFECOXIB [Concomitant]
  3. FOLIC ACID [Concomitant]

REACTIONS (22)
  - ABSCESS INTESTINAL [None]
  - ANGIOSARCOMA [None]
  - AORTIC ATHEROSCLEROSIS [None]
  - BRONCHIECTASIS [None]
  - CAROTID ARTERY THROMBOSIS [None]
  - CHOLELITHIASIS [None]
  - CORONARY ARTERY ATHEROSCLEROSIS [None]
  - DEHYDRATION [None]
  - DIVERTICULUM INTESTINAL [None]
  - EMPHYSEMA [None]
  - GASTROINTESTINAL INFECTION [None]
  - GENERAL PHYSICAL HEALTH DETERIORATION [None]
  - HEPATIC STEATOSIS [None]
  - IMMUNOSUPPRESSION [None]
  - LUNG NEOPLASM [None]
  - LYMPHADENOPATHY [None]
  - METASTATIC NEOPLASM [None]
  - MYCOBACTERIAL INFECTION [None]
  - NEOPLASM MALIGNANT [None]
  - PERICARDIAL EFFUSION [None]
  - RENAL DISORDER [None]
  - SPLENOMEGALY [None]
